FAERS Safety Report 8358029-7 (Version None)
Quarter: 2012Q2

REPORT INFORMATION
  Report Type: 
  Country: None (occurrence: None)
  Receive Date: 20120511
  Receipt Date: 20120502
  Transmission Date: 20120825
  Serious: No
  Sender: FDA-Public Use
  Company Number: AUR-APL-2012-01974

PATIENT
  Age: 22 Year
  Sex: Female

DRUGS (4)
  1. DILANTIN [Suspect]
     Indication: CONVULSION
  2. ACETAMINOPHEN [Concomitant]
  3. LEVETIRACETAM [Suspect]
     Indication: CONVULSION
  4. MORPHINE [Concomitant]

REACTIONS (4)
  - ANTICONVULSANT DRUG LEVEL INCREASED [None]
  - GASTROENTERITIS [None]
  - DRUG RASH WITH EOSINOPHILIA AND SYSTEMIC SYMPTOMS [None]
  - COAGULOPATHY [None]
